FAERS Safety Report 23181180 (Version 1)
Quarter: 2023Q4

REPORT INFORMATION
  Report Type: Spontaneous
  Country: KR (occurrence: KR)
  Receive Date: 20231114
  Receipt Date: 20231114
  Transmission Date: 20240109
  Serious: Yes (Other)
  Sender: FDA-Public Use
  Company Number: KR-ROCHE-3451937

PATIENT
  Age: 79 Year
  Sex: Male

DRUGS (4)
  1. MIRCERA [Suspect]
     Active Substance: METHOXY POLYETHYLENE GLYCOL-EPOETIN BETA
     Indication: Product used for unknown indication
     Dosage: ADMINISTRATION DATES: 02-JAN-2023, 06-MAR-2023, 03-APR-2023, 12-JUL-2023, 16-AUG-2023, 20-SEP-2023
     Route: 065
     Dates: start: 20230102
  2. MIRCERA [Suspect]
     Active Substance: METHOXY POLYETHYLENE GLYCOL-EPOETIN BETA
     Dosage: ADMINISTRATION DATES: 20-APR-2023, 05-JUN-2023
     Route: 065
     Dates: start: 20230420
  3. MIRCERA [Suspect]
     Active Substance: METHOXY POLYETHYLENE GLYCOL-EPOETIN BETA
     Route: 065
     Dates: end: 20231025
  4. IRON [Concomitant]
     Active Substance: IRON
     Route: 048
     Dates: start: 20220704

REACTIONS (1)
  - Gastric ulcer haemorrhage [Unknown]

NARRATIVE: CASE EVENT DATE: 20230420
